FAERS Safety Report 10248974 (Version 1)
Quarter: 2014Q2

REPORT INFORMATION
  Report Type: Spontaneous
  Country: GB (occurrence: None)
  Receive Date: 20140618
  Receipt Date: 20140618
  Transmission Date: 20141212
  Serious: Yes (Disabling, Other)
  Sender: FDA-Public Use
  Company Number: AUR-APL-2014-06381

PATIENT
  Age: 88 Year
  Sex: Male

DRUGS (4)
  1. DONEPEZIL [Suspect]
     Indication: MEMORY IMPAIRMENT
     Route: 048
     Dates: start: 20140318, end: 20140402
  2. FUROSEMIDE (FUROSEMIDE) [Concomitant]
  3. RAMIPRIL (RAMIPRIL) [Concomitant]
  4. TAMSULOSIN (TAMSULOSIN) [Concomitant]

REACTIONS (3)
  - Rash [None]
  - Rash erythematous [None]
  - Rash pruritic [None]
